FAERS Safety Report 7134492-4 (Version None)
Quarter: 2010Q4

REPORT INFORMATION
  Report Type: 
  Country: None (occurrence: None)
  Receive Date: 20101203
  Receipt Date: 20101123
  Transmission Date: 20110411
  Serious: Yes (Death, Hospitalization, Other)
  Sender: FDA-Public Use
  Company Number: FR-KINGPHARMUSA00001-K201001429

PATIENT
  Age: 83 Year
  Sex: Female

DRUGS (6)
  1. ALTACE [Suspect]
     Dosage: 1.25 MG, QD
     Route: 048
  2. CORDARONE [Suspect]
     Dosage: 200 MG, QD
     Route: 048
     Dates: start: 20090401, end: 20101001
  3. LASILIX [Suspect]
     Dosage: 40 MG, QD
     Route: 048
     Dates: start: 20090401
  4. PREVISCAN [Suspect]
     Dosage: 20 MG, QD
     Route: 048
  5. LEVOTHYROX [Suspect]
     Dosage: 100 MCG, QD
     Route: 048
  6. PULMICORT [Suspect]
     Dosage: 400 MCG, BID

REACTIONS (8)
  - ACUTE RESPIRATORY DISTRESS SYNDROME [None]
  - DYSPNOEA [None]
  - INTERSTITIAL LUNG DISEASE [None]
  - LOSS OF CONSCIOUSNESS [None]
  - LYMPHOPENIA [None]
  - MALAISE [None]
  - NEUTROPHILIA [None]
  - NORMOCHROMIC NORMOCYTIC ANAEMIA [None]
